FAERS Safety Report 8472994-9 (Version None)
Quarter: 2012Q2

REPORT INFORMATION
  Report Type: 
  Country: None (occurrence: None)
  Receive Date: 20120627
  Receipt Date: 20120620
  Transmission Date: 20120825
  Serious: Yes (Other)
  Sender: FDA-Public Use
  Company Number: FR-UCBSA-059986

PATIENT
  Age: 69 Year
  Sex: Male

DRUGS (1)
  1. KEPPRA [Suspect]
     Indication: EPILEPSY
     Route: 048
     Dates: start: 20111215, end: 20120507

REACTIONS (5)
  - IRRITABILITY [None]
  - PARAESTHESIA [None]
  - SLEEP DISORDER [None]
  - RESTLESS LEGS SYNDROME [None]
  - MYALGIA [None]
